FAERS Safety Report 11958590 (Version 2)
Quarter: 2016Q1

REPORT INFORMATION
  Report Type: Report from Study
  Country: US (occurrence: US)
  Receive Date: 20160126
  Receipt Date: 20160203
  Transmission Date: 20160526
  Serious: No
  Sender: FDA-Public Use
  Company Number: US-AMGEN-USASL2016006170

PATIENT
  Age: 53 Year
  Sex: Female

DRUGS (3)
  1. ENBREL [Suspect]
     Active Substance: ETANERCEPT
     Indication: PSORIATIC ARTHROPATHY
     Dosage: 25 MG, 2 TIMES/WK
     Route: 058
  2. METHOTREXATE [Concomitant]
     Active Substance: METHOTREXATE
     Dosage: UNK
  3. ENBREL [Suspect]
     Active Substance: ETANERCEPT
     Indication: RHEUMATOID ARTHRITIS
     Dosage: 50 MG, QWK
     Route: 058
     Dates: start: 2015

REACTIONS (19)
  - Dysphagia [Recovering/Resolving]
  - Headache [Unknown]
  - Adverse drug reaction [Unknown]
  - Injection site urticaria [Unknown]
  - Influenza [Unknown]
  - Injection site erythema [Unknown]
  - Injection site pain [Unknown]
  - Injection site reaction [Unknown]
  - Injection site mass [Unknown]
  - Dyspnoea [Unknown]
  - Anxiety [Unknown]
  - Injection site pruritus [Unknown]
  - Psoriasis [Unknown]
  - Palpitations [Unknown]
  - Malaise [Unknown]
  - Injection site swelling [Unknown]
  - Swollen tongue [Unknown]
  - Injection site induration [Unknown]
  - Injection site warmth [Unknown]

NARRATIVE: CASE EVENT DATE: 20160121
